FAERS Safety Report 4263817-2 (Version None)
Quarter: 2004Q1

REPORT INFORMATION
  Report Type: 
  Country: None (occurrence: None)
  Receive Date: 20040105
  Receipt Date: 20040105
  Transmission Date: 20041129
  Serious: No
  Sender: FDA-Public Use
  Company Number: None

PATIENT
  Age: 12 Year
  Sex: 0
  Weight: 48.5349 kg

DRUGS (3)
  1. RISPERIDONE [Suspect]
     Indication: BIPOLAR DISORDER
     Dosage: 1.5 MG PO BID
     Route: 048
     Dates: start: 20030713
  2. DIVALPROEX SODIUM [Concomitant]
  3. TRAZODONE HCL [Concomitant]

REACTIONS (1)
  - BLOOD PROLACTIN INCREASED [None]
